FAERS Safety Report 26081925 (Version 1)
Quarter: 2025Q4

REPORT INFORMATION
  Report Type: Spontaneous
  Country: EU (occurrence: EU)
  Receive Date: 20251124
  Receipt Date: 20251124
  Transmission Date: 20260118
  Serious: Yes (Hospitalization)
  Sender: AUROBINDO
  Company Number: EU-LRB-01096145

PATIENT
  Age: 66 Year
  Sex: Male
  Weight: 105 kg

DRUGS (14)
  1. PREDNISONE [Suspect]
     Active Substance: PREDNISONE
     Indication: B-cell type acute leukaemia
     Dosage: 90 MILLIGRAM, ONCE A DAY (1X PER DAG 90MG)
     Dates: start: 20251024
  2. GLICLAZIDE TABLET MGA 80MG / Brand name not specified [Concomitant]
     Indication: Product used for unknown indication
     Dosage: UNK
  3. INSULINE ASPART INJVLST 100E/ML / Brand name not specified [Concomitant]
     Indication: Product used for unknown indication
     Dosage: UNK
     Route: 065
  4. VALACICLOVIR TABLET  500MG / Brand name not specified [Concomitant]
     Indication: Product used for unknown indication
     Dosage: UNK
  5. ROSUVASTATINE TABLET 20MG / Brand name not specified [Concomitant]
     Indication: Product used for unknown indication
     Dosage: UNK
  6. PERINDOPRIL ERBUMINE [Concomitant]
     Active Substance: PERINDOPRIL ERBUMINE
     Indication: Product used for unknown indication
     Dosage: UNK
  7. OMEPRAZOLE [Concomitant]
     Active Substance: OMEPRAZOLE
     Indication: Product used for unknown indication
     Dosage: UNK
  8. METFORMINE TABLET  1000MG / Brand name not specified [Concomitant]
     Indication: Product used for unknown indication
     Dosage: UNK
  9. ISOSORBIDEMONONITRAAT CAPSULE MGA  25MG / Brand name not specified [Concomitant]
     Indication: Product used for unknown indication
     Dosage: UNK
  10. FLUCONAZOLE [Concomitant]
     Active Substance: FLUCONAZOLE
     Indication: Product used for unknown indication
     Dosage: UNK
  11. DALTEPARINE INJECTIE/INFUUS / Brand name not specified [Concomitant]
     Indication: Product used for unknown indication
     Dosage: UNK
     Route: 065
  12. CETIRIZINE [Concomitant]
     Active Substance: CETIRIZINE HYDROCHLORIDE
     Indication: Product used for unknown indication
     Dosage: UNK
  13. ALLOPURINOL [Concomitant]
     Active Substance: ALLOPURINOL
     Indication: Product used for unknown indication
     Dosage: UNK
  14. ASPIRIN [Concomitant]
     Active Substance: ASPIRIN
     Indication: Product used for unknown indication
     Dosage: UNK

REACTIONS (2)
  - Hyperglycaemia [Recovering/Resolving]
  - Dehydration [Recovering/Resolving]
